FAERS Safety Report 9585346 (Version 2)
Quarter: 2013Q4

REPORT INFORMATION
  Report Type: Spontaneous
  Country: US (occurrence: US)
  Receive Date: 20131003
  Receipt Date: 20131118
  Transmission Date: 20140711
  Serious: No
  Sender: FDA-Public Use
  Company Number: US-B.I. PHARMACEUTICALS,INC./RIDGEFIELD-2013-BI-30002BP

PATIENT
  Age: 62 Year
  Sex: Male
  Weight: 75 kg

DRUGS (17)
  1. SPIRIVA [Suspect]
     Indication: CHRONIC OBSTRUCTIVE PULMONARY DISEASE
     Dosage: 18 MCG
     Route: 055
     Dates: start: 201302
  2. COMBIVENT [Suspect]
     Indication: CHRONIC OBSTRUCTIVE PULMONARY DISEASE
     Dosage: STRENGTH: 20 MCG / 100 MCG; DAILY DOSE: 80MCG/400MCG
     Route: 055
     Dates: start: 201308, end: 201309
  3. SYMBICORT [Concomitant]
     Indication: CHRONIC OBSTRUCTIVE PULMONARY DISEASE
     Dosage: 4 PUF
     Route: 055
  4. TERAZOSIN HCL [Concomitant]
     Dosage: 2 MG
     Route: 048
  5. SIMVASTATIN [Concomitant]
     Indication: BLOOD CHOLESTEROL INCREASED
     Dosage: 40 MG
     Route: 048
  6. PREDNISONE [Concomitant]
     Indication: CHRONIC OBSTRUCTIVE PULMONARY DISEASE
     Dosage: 10 MG
     Route: 048
  7. TRAZODONE HCL [Concomitant]
     Indication: INSOMNIA
     Dosage: 100 MG
     Route: 048
  8. TRAMADOL [Concomitant]
     Indication: PAIN
     Dosage: 300 MG
     Route: 048
  9. METHOCARBAMOL [Concomitant]
     Indication: INTERVERTEBRAL DISC DEGENERATION
     Dosage: 3000 MG
     Route: 048
  10. GABAPENTIN [Concomitant]
     Indication: MUSCLE RELAXANT THERAPY
     Dosage: 2400 MG
     Route: 048
  11. HYDROCODONE 10/ACET 325MG [Concomitant]
     Indication: PAIN
     Dosage: STRENGTH: 10MG/325MG; DAILY DOSE: 40MG/1300MG
     Route: 048
  12. CHLORPHENIRAMINE MALEATE [Concomitant]
     Indication: HYPERSENSITIVITY
     Dosage: 8 MG
     Route: 048
  13. PROPANOLOL HCL [Concomitant]
     Indication: HYPERTENSION
     Dosage: 30 MG
     Route: 048
  14. AMLODIPINE BESYLATE [Concomitant]
     Indication: HYPERTENSION
     Dosage: 10 MG
     Route: 048
  15. CLONIDINE HCL [Concomitant]
     Indication: HYPERTENSION
     Dosage: 0.9 MG
     Route: 048
  16. LEVOTHYROXINE [Concomitant]
     Indication: THYROID DISORDER
     Dosage: 0.125 MG
     Route: 048
  17. OMEPRAZOLE [Concomitant]
     Indication: GASTROOESOPHAGEAL REFLUX DISEASE
     Dosage: 40 MG
     Route: 048

REACTIONS (1)
  - Drug ineffective [Recovered/Resolved]
